FAERS Safety Report 8417030-5 (Version None)
Quarter: 2012Q2

REPORT INFORMATION
  Report Type: 
  Country: None (occurrence: None)
  Receive Date: 20120606
  Receipt Date: 20120530
  Transmission Date: 20120825
  Serious: Yes (Life-Threatening, Other)
  Sender: FDA-Public Use
  Company Number: DE-JNJFOC-20120517381

PATIENT
  Sex: Male

DRUGS (12)
  1. PANTOPRAZOLE [Suspect]
     Indication: GASTRIC DISORDER
     Route: 048
  2. ALFUZOSIN HCL [Suspect]
     Indication: PROSTATIC DISORDER
     Route: 048
  3. AMITRIPTYLINE HCL [Suspect]
     Indication: PRODUCT USED FOR UNKNOWN INDICATION
     Route: 048
  4. OPIUM ALKALOIDS AND DERIVATIVES [Suspect]
     Indication: ILL-DEFINED DISORDER
  5. OPIUM/NALOXONE TAB [Suspect]
     Indication: PAIN
  6. BISOPROLOL FUMARATE [Suspect]
     Indication: HYPERTENSION
     Route: 048
  7. VOLTAREN [Suspect]
     Indication: PAIN
     Route: 048
  8. ARCOXIA [Suspect]
     Indication: PAIN
     Route: 048
  9. XARELTO [Suspect]
     Indication: KNEE ARTHROPLASTY
     Route: 048
  10. TORSEMIDE [Suspect]
     Indication: DIURETIC THERAPY
     Route: 048
  11. AMLODIPINE [Suspect]
     Indication: HYPERTENSION
     Route: 048
  12. RAMIPRIL [Suspect]
     Indication: HYPERTENSION
     Route: 048

REACTIONS (1)
  - LOSS OF CONSCIOUSNESS [None]
